FAERS Safety Report 10744256 (Version 3)
Quarter: 2015Q2

REPORT INFORMATION
  Report Type: Spontaneous
  Country: GB (occurrence: None)
  Receive Date: 20150126
  Receipt Date: 20150512
  Transmission Date: 20150821
  Serious: Yes (Hospitalization, Disabling, Other)
  Sender: FDA-Public Use
  Company Number: FK201500303

PATIENT
  Age: 15 Year
  Sex: Female
  Weight: 67 kg

DRUGS (11)
  1. GABAPENTIN. [Concomitant]
     Active Substance: GABAPENTIN
  2. DOXORUBICIN [Concomitant]
     Active Substance: DOXORUBICIN
  3. AMITRIPTYLINE [Concomitant]
     Active Substance: AMITRIPTYLINE
  4. CALCIUM FOLINATE [Concomitant]
     Active Substance: LEUCOVORIN CALCIUM
  5. METOCLOPRAMIDE. [Concomitant]
     Active Substance: METOCLOPRAMIDE
  6. ONDANSETRON [Concomitant]
     Active Substance: ONDANSETRON
  7. SODIUM BICARBONATE. [Concomitant]
     Active Substance: SODIUM BICARBONATE
  8. METHOTREXATE (MANUFACTURER UNKNOWN) (METHOTREXATE) (METHOTREXATE) [Suspect]
     Active Substance: METHOTREXATE
     Indication: OSTEOSARCOMA
     Route: 042
     Dates: start: 20141226, end: 20141227
  9. NORETHISTERONE [Concomitant]
     Active Substance: NORETHINDRONE
  10. MEPACT (MIFAMURTIDE) (MIFAMURTIDE) [Suspect]
     Active Substance: MIFAMURTIDE
     Indication: OSTEOSARCOMA
     Route: 042
     Dates: start: 20150103
  11. CISPLATIN. [Concomitant]
     Active Substance: CISPLATIN

REACTIONS (12)
  - Muscular weakness [None]
  - Affect lability [None]
  - Chills [None]
  - Toxic encephalopathy [None]
  - Aphasia [None]
  - Headache [None]
  - Hyperhidrosis [None]
  - Arthralgia [None]
  - Quadriplegia [None]
  - Febrile neutropenia [None]
  - Paresis [None]
  - Leukoencephalopathy [None]
